FAERS Safety Report 24459287 (Version 1)
Quarter: 2024Q4

REPORT INFORMATION
  Report Type: Spontaneous
  Country: CA (occurrence: CA)
  Receive Date: 20241018
  Receipt Date: 20241018
  Transmission Date: 20250114
  Serious: Yes (Other)
  Sender: CELLTRION
  Company Number: CA-PFIZER INC-202400242723

PATIENT

DRUGS (3)
  1. INFLECTRA [Suspect]
     Active Substance: INFLIXIMAB-DYYB
     Indication: Colitis ulcerative
     Dosage: 400 MG, AT WEEK 0, 2 AND 6 (MAINTENANCE NOT PRESCRIBED YET)
     Route: 042
     Dates: start: 20240926
  2. PREDNISONE [Concomitant]
     Active Substance: PREDNISONE
     Dosage: 50 MG
     Dates: start: 202311, end: 202312
  3. PREDNISONE [Concomitant]
     Active Substance: PREDNISONE
     Dosage: 40 MG (TAPERING DOSE)
     Dates: start: 202408

REACTIONS (2)
  - Condition aggravated [Not Recovered/Not Resolved]
  - Laryngeal pain [Unknown]

NARRATIVE: CASE EVENT DATE: 20240101
